FAERS Safety Report 10028726 (Version 3)
Quarter: 2014Q2

REPORT INFORMATION
  Report Type: Report from Study
  Country: PL (occurrence: PL)
  Receive Date: 20140321
  Receipt Date: 20140521
  Transmission Date: 20141212
  Serious: No
  Sender: FDA-Public Use
  Company Number: PHHY2014PL032892

PATIENT
  Age: 18 Year
  Sex: Female

DRUGS (4)
  1. NILOTINIB [Suspect]
     Indication: CHRONIC MYELOID LEUKAEMIA
     Dosage: 400 MG, BID
     Dates: start: 200708
  2. NILOTINIB [Suspect]
     Dosage: 200 MG, BID
  3. NILOTINIB [Suspect]
     Dosage: UNK UKN, UNK
     Dates: end: 201205
  4. NILOTINIB [Suspect]
     Dosage: 400 MG, BID
     Dates: start: 20130224

REACTIONS (3)
  - Maternal exposure during pregnancy [Unknown]
  - Normal newborn [Unknown]
  - Therapeutic response decreased [Unknown]
